FAERS Safety Report 19354951 (Version 4)
Quarter: 2021Q3

REPORT INFORMATION
  Report Type: Spontaneous
  Country: FR (occurrence: FR)
  Receive Date: 20210601
  Receipt Date: 20210831
  Transmission Date: 20211014
  Serious: Yes (Other)
  Sender: FDA-Public Use
  Company Number: FR-BRISTOL-MYERS SQUIBB COMPANY-BMS-2021-051242

PATIENT
  Age: 70 Year
  Sex: Female
  Weight: 80 kg

DRUGS (7)
  1. TAXOL [Suspect]
     Active Substance: PACLITAXEL
     Dosage: 60 MILLIGRAM/SQ. METER
  2. KARDEGIC [Concomitant]
     Active Substance: ASPIRIN DL-LYSINE
     Indication: CARDIAC DISORDER
     Dosage: 75 MILLIGRAM
     Route: 048
  3. TENORETIC [Concomitant]
     Active Substance: ATENOLOL\CHLORTHALIDONE
     Indication: HYPERTENSION
     Dosage: 50/12.5
     Route: 048
  4. INEGY [Concomitant]
     Active Substance: EZETIMIBE\SIMVASTATIN
     Indication: DIABETES MELLITUS
     Dosage: 10MG/40 MG
     Route: 048
  5. ORENCIA [Suspect]
     Active Substance: ABATACEPT
     Indication: RHEUMATOID ARTHRITIS
     Dosage: UNK
     Route: 058
     Dates: start: 2018
  6. INIPOMP [Concomitant]
     Active Substance: PANTOPRAZOLE SODIUM
     Indication: PRODUCT USED FOR UNKNOWN INDICATION
     Dosage: 20 MILLIGRAM
     Route: 048
  7. TAXOL [Suspect]
     Active Substance: PACLITAXEL
     Indication: BREAST CANCER
     Dosage: 80 MILLIGRAM/SQ. METER, QWK
     Route: 042
     Dates: start: 20200930, end: 20210120

REACTIONS (7)
  - Immunodeficiency [Unknown]
  - Vulval ulceration [Unknown]
  - Decreased appetite [Unknown]
  - Off label use [Unknown]
  - Mucosal inflammation [Recovered/Resolved]
  - Herpes virus infection [Recovering/Resolving]
  - Mouth ulceration [Unknown]

NARRATIVE: CASE EVENT DATE: 20201104
